FAERS Safety Report 5204724-8 (Version None)
Quarter: 2007Q1

REPORT INFORMATION
  Report Type: 
  Country: None (occurrence: None)
  Receive Date: 20070110
  Receipt Date: 20060627
  Transmission Date: 20070707
  Serious: Yes (Other)
  Sender: FDA-Public Use
  Company Number: US-BRISTOL-MYERS SQUIBB COMPANY-13425426

PATIENT
  Age: 31 Year
  Sex: Female
  Weight: 82 kg

DRUGS (1)
  1. ABILIFY [Suspect]
     Indication: BIPOLAR DISORDER
     Dosage: THE DOSE WAS INCREASED TO 10 MG/D ON 12-JUN-2006.
     Route: 048
     Dates: start: 20060607, end: 20060613

REACTIONS (4)
  - FEELING JITTERY [None]
  - INSOMNIA [None]
  - PANIC ATTACK [None]
  - SUICIDAL IDEATION [None]
